FAERS Safety Report 8595576-7 (Version None)
Quarter: 2012Q3

REPORT INFORMATION
  Report Type: 
  Country: None (occurrence: None)
  Receive Date: 20120815
  Receipt Date: 20120809
  Transmission Date: 20120928
  Serious: Yes (Death, Other)
  Sender: FDA-Public Use
  Company Number: KR-PFIZER INC-2012194977

PATIENT
  Age: 72 Year
  Sex: Male

DRUGS (3)
  1. TIGECYCLINE [Suspect]
     Indication: PNEUMONIA
     Dosage: 50 MG, 2X/DAY
     Route: 042
  2. TIGECYCLINE [Suspect]
     Indication: PATHOGEN RESISTANCE
     Dosage: 100 MG, 1X/DAY
     Route: 042
  3. CIPROFLOXACIN [Concomitant]

REACTIONS (2)
  - DRUG INEFFECTIVE [None]
  - DEATH [None]
